FAERS Safety Report 5727692-9 (Version None)
Quarter: 2008Q2

REPORT INFORMATION
  Report Type: 
  Country: None (occurrence: None)
  Receive Date: 20080505
  Receipt Date: 20080423
  Transmission Date: 20081010
  Serious: Yes (Other)
  Sender: FDA-Public Use
  Company Number: PHHY2008GB06765

PATIENT
  Age: 81 Year
  Sex: Female

DRUGS (1)
  1. ESTRADERM [Suspect]
     Indication: OESTROGEN DEFICIENCY

REACTIONS (5)
  - DIZZINESS [None]
  - FALL [None]
  - FEELING ABNORMAL [None]
  - JOINT SWELLING [None]
  - PARAESTHESIA [None]
